FAERS Safety Report 15207229 (Version 1)
Quarter: 2018Q3

REPORT INFORMATION
  Report Type: Spontaneous
  Country: US (occurrence: US)
  Receive Date: 20180628
  Receipt Date: 20180628
  Transmission Date: 20181010
  Serious: Yes (Other)
  Sender: FDA-Public Use
  Company Number: None

PATIENT
  Age: 19 Day
  Sex: Male
  Weight: 3.29 kg

DRUGS (1)
  1. XYLOCAINE?MPF [Suspect]
     Active Substance: LIDOCAINE HYDROCHLORIDE
     Indication: CIRCUMCISION
     Dosage: 1  ML IM INTO PENIS
     Dates: start: 20180614

REACTIONS (3)
  - Hyperhidrosis [None]
  - Inadequate analgesia [None]
  - Crying [None]

NARRATIVE: CASE EVENT DATE: 20180614
